FAERS Safety Report 22769226 (Version 15)
Quarter: 2024Q1

REPORT INFORMATION
  Report Type: Spontaneous
  Country: ES (occurrence: ES)
  Receive Date: 20230731
  Receipt Date: 20240223
  Transmission Date: 20240410
  Serious: Yes (Hospitalization, Other)
  Sender: FDA-Public Use
  Company Number: None

PATIENT
  Age: 45 Year
  Sex: Male
  Weight: 64.5 kg

DRUGS (21)
  1. PEMBROLIZUMAB [Suspect]
     Active Substance: PEMBROLIZUMAB
     Indication: Squamous cell carcinoma of head and neck
     Dosage: 200 MG 1Q3W
     Route: 042
     Dates: start: 20230509, end: 20230509
  2. PEMBROLIZUMAB [Suspect]
     Active Substance: PEMBROLIZUMAB
     Dosage: 200 MG 1Q3W
     Route: 042
     Dates: start: 20230614, end: 20230614
  3. PEMBROLIZUMAB [Suspect]
     Active Substance: PEMBROLIZUMAB
     Dosage: 200 MG 1Q3W
     Route: 042
     Dates: start: 20230718, end: 20230718
  4. CISPLATIN [Suspect]
     Active Substance: CISPLATIN
     Indication: Squamous cell carcinoma of head and neck
     Dosage: 100 MG/M2, 1Q3W
     Route: 042
     Dates: start: 20230509, end: 20230509
  5. CISPLATIN [Suspect]
     Active Substance: CISPLATIN
     Dosage: 80 MG/M2, 1Q3W
     Route: 042
     Dates: start: 20230614, end: 20230614
  6. CISPLATIN [Suspect]
     Active Substance: CISPLATIN
     Dosage: 64 MG/M2, 1Q3W
     Route: 042
     Dates: start: 20230718, end: 20230718
  7. FLUOROURACIL [Suspect]
     Active Substance: FLUOROURACIL
     Indication: Squamous cell carcinoma of head and neck
     Dosage: 1000 MG/M2/DAY, ON DAY 1,2,3,4, 1Q3W
     Route: 042
     Dates: start: 20230509, end: 20230513
  8. FLUOROURACIL [Suspect]
     Active Substance: FLUOROURACIL
     Dosage: 800 MG/M2/DAY, ON DAY 1,2,3,4, 1Q3W
     Route: 042
     Dates: start: 20230614, end: 20230618
  9. FLUOROURACIL [Suspect]
     Active Substance: FLUOROURACIL
     Dosage: 640 MILLIGRAM/SQ. METER
     Route: 042
     Dates: start: 20230718, end: 20230722
  10. TECAGINLIMAB [Suspect]
     Active Substance: TECAGINLIMAB
     Indication: Squamous cell carcinoma of head and neck
     Dosage: 100 MILLIGRAM, Q3W
     Route: 042
     Dates: start: 20230718, end: 20230718
  11. APREPITANT [Concomitant]
     Active Substance: APREPITANT
     Dosage: UNK
     Dates: start: 20230509, end: 20230618
  12. PEGFILGRASTIM [Concomitant]
     Active Substance: PEGFILGRASTIM
     Dosage: UNK
     Dates: start: 20230615, end: 20230615
  13. VANCOMYCIN [Concomitant]
     Active Substance: VANCOMYCIN
     Dosage: UNK
     Dates: start: 20230529, end: 20230609
  14. ONDANSETRON [Concomitant]
     Active Substance: ONDANSETRON
     Dosage: UNK
     Dates: start: 20230509, end: 20230718
  15. DEXAMETHASONE [Concomitant]
     Active Substance: DEXAMETHASONE
     Dosage: UNK
     Dates: start: 20230509, end: 20230718
  16. AVIBACTAM SODIUM\CEFTAZIDIME [Concomitant]
     Active Substance: AVIBACTAM SODIUM\CEFTAZIDIME
     Indication: Cough
     Dosage: UNK
     Dates: start: 20230608, end: 20230609
  17. AVIBACTAM SODIUM\CEFTAZIDIME [Concomitant]
     Active Substance: AVIBACTAM SODIUM\CEFTAZIDIME
     Dosage: UNK
     Dates: start: 20230626, end: 20230707
  18. FLUCONAZOLE [Concomitant]
     Active Substance: FLUCONAZOLE
     Dosage: UNK
     Dates: start: 20230630, end: 20230714
  19. CALCIUM CHLORIDE\POTASSIUM CHLORIDE\SODIUM ACETATE\SODIUM CHLORIDE [Concomitant]
     Active Substance: CALCIUM CHLORIDE\POTASSIUM CHLORIDE\SODIUM ACETATE\SODIUM CHLORIDE
     Dosage: UNK
     Dates: start: 20230626, end: 20230707
  20. AZTREONAM [Concomitant]
     Active Substance: AZTREONAM
     Dosage: UNK
     Dates: start: 20230630, end: 20230707
  21. ONDANSETRON [Concomitant]
     Active Substance: ONDANSETRON
     Dosage: UNK
     Dates: start: 20230509, end: 20230718

REACTIONS (3)
  - Febrile neutropenia [Recovered/Resolved]
  - Febrile neutropenia [Recovered/Resolved]
  - Infected neoplasm [Recovered/Resolved]

NARRATIVE: CASE EVENT DATE: 20230519
